FAERS Safety Report 6715894-4 (Version None)
Quarter: 2010Q2

REPORT INFORMATION
  Report Type: 
  Country: None (occurrence: None)
  Receive Date: 20100507
  Receipt Date: 20100428
  Transmission Date: 20101027
  Serious: Yes (Death, Other)
  Sender: FDA-Public Use
  Company Number: FR-AMGEN-QUU390824

PATIENT
  Sex: Male

DRUGS (18)
  1. NEULASTA [Suspect]
     Indication: CHEMOTHERAPY
     Route: 058
     Dates: start: 20091123, end: 20100119
  2. NEUPOGEN [Suspect]
  3. MABTHERA [Concomitant]
     Route: 042
     Dates: start: 20090301, end: 20100117
  4. DEXAMETHASONE [Concomitant]
     Dates: start: 20091118
  5. CYTARABINE [Concomitant]
     Dates: start: 20091118
  6. CISPLATIN [Concomitant]
     Dates: start: 20091118
  7. VINCRISTINE [Concomitant]
     Route: 042
     Dates: start: 20091201, end: 20100117
  8. METHOTREXATE [Concomitant]
     Route: 042
     Dates: start: 20090301, end: 20100112
  9. ENDOXAN [Concomitant]
     Route: 042
     Dates: start: 20090301, end: 20100112
  10. DOXORUBICIN HCL [Concomitant]
     Dates: start: 20100110
  11. PREDNISONE [Concomitant]
     Dates: start: 20100110
  12. PRIMPERAN TAB [Concomitant]
  13. ACETAMINOPHEN AND CODEINE PHOSPHATE [Concomitant]
  14. OMEPRAZOLE [Concomitant]
  15. IMOVANE [Concomitant]
  16. TOPALGIC [Concomitant]
  17. DOMPERIDONE [Concomitant]
  18. CERUBIDINE [Concomitant]
     Route: 042
     Dates: start: 20091201, end: 20100113

REACTIONS (22)
  - DEATH [None]
  - DISCOMFORT [None]
  - DRY MOUTH [None]
  - DYSPHAGIA [None]
  - EPILEPSY [None]
  - FEELING COLD [None]
  - FEELING OF BODY TEMPERATURE CHANGE [None]
  - GASTRIC DISORDER [None]
  - GASTRIC ULCER PERFORATION [None]
  - HYPOAESTHESIA [None]
  - INCREASED UPPER AIRWAY SECRETION [None]
  - MICTURITION DISORDER [None]
  - NEUTROPENIA [None]
  - REGURGITATION [None]
  - RESPIRATORY DISORDER [None]
  - RESPIRATORY DISTRESS [None]
  - SALIVARY HYPERSECRETION [None]
  - THIRST [None]
  - TREMOR [None]
  - VISION BLURRED [None]
  - VISUAL IMPAIRMENT [None]
  - VOMITING [None]
